FAERS Safety Report 18176422 (Version 1)
Quarter: 2020Q3

REPORT INFORMATION
  Report Type: Spontaneous
  Country: DE (occurrence: DE)
  Receive Date: 20200820
  Receipt Date: 20200820
  Transmission Date: 20201103
  Serious: Yes (Hospitalization, Other)
  Sender: FDA-Public Use
  Company Number: DE-TEVA-2020-DE-1815742

PATIENT
  Age: 71 Year
  Sex: Male

DRUGS (12)
  1. MELPERON [Concomitant]
     Active Substance: MELPERONE
     Dosage: 25 MG, AT NIGHT IF NECESSARY
  2. TORASEMID [Concomitant]
     Active Substance: TORSEMIDE
     Dosage: 100 MILLIGRAM DAILY; 1?0?0?0
  3. BISOPROLOL [Suspect]
     Active Substance: BISOPROLOL
     Dosage: 2.5 MILLIGRAM DAILY; 1?0?0?0
  4. EZETIMIB [Concomitant]
     Active Substance: EZETIMIBE
     Dosage: 10 MILLIGRAM DAILY; 0?0?1?0
  5. ACETYLSALICYLSAEURE [Concomitant]
     Active Substance: ASPIRIN
     Dosage: 100 MILLIGRAM DAILY; 0?1?0?0
  6. INSULIN HUMALOG 50 [Concomitant]
     Dosage: 15 IU (INTERNATIONAL UNIT) DAILY; 0?0?1?0
  7. MACROGOL [Concomitant]
     Active Substance: POLYETHYLENE GLYCOLS
     Dosage: 1 DOSAGE FORMS DAILY; 1?0?0?0
  8. ATORVASTATIN [Concomitant]
     Active Substance: ATORVASTATIN
     Dosage: 20 MILLIGRAM DAILY; 0?0?1?0
  9. TAMSULOSIN [Concomitant]
     Active Substance: TAMSULOSIN
     Dosage: .4 MILLIGRAM DAILY; 0?0?1?0
  10. MELATONIN [Concomitant]
     Active Substance: MELATONIN
     Dosage: 2 MILLIGRAM DAILY; 0?0?0?1
  11. KALIUM VERLA [Concomitant]
     Active Substance: POTASSIUM CITRATE
     Dosage: BY VALUE
  12. INSULIN HUMALOG 50 [Concomitant]
     Dosage: 20 IU (INTERNATIONAL UNIT) DAILY; 0?0?1?0

REACTIONS (6)
  - Angina pectoris [Unknown]
  - Acute respiratory failure [Unknown]
  - Dyspnoea [Unknown]
  - Oedema peripheral [Unknown]
  - General physical health deterioration [Unknown]
  - Fatigue [Unknown]
